FAERS Safety Report 11624680 (Version 1)
Quarter: 2015Q4

REPORT INFORMATION
  Report Type: Spontaneous
  Country: JP (occurrence: JP)
  Receive Date: 20151013
  Receipt Date: 20151013
  Transmission Date: 20160304
  Serious: Yes (Other)
  Sender: FDA-Public Use
  Company Number: JP-TEVA-2015-JP-001989J

PATIENT
  Age: 54 Year
  Sex: Female
  Weight: 48 kg

DRUGS (9)
  1. CEFAZOLIN SODIUM FOR INJECTION 1G TAIYO [Suspect]
     Active Substance: CEFAZOLIN SODIUM
     Route: 042
     Dates: start: 20150705, end: 20150708
  2. VANCOMYCIN [Suspect]
     Active Substance: VANCOMYCIN
     Route: 041
     Dates: start: 20150705, end: 20150709
  3. TRESIBA [Concomitant]
     Active Substance: INSULIN DEGLUDEC
     Route: 065
  4. HUMALOG [Concomitant]
     Active Substance: INSULIN LISPRO
     Route: 065
  5. CEFAZOLIN SODIUM FOR INJECTION 1G TAIYO [Suspect]
     Active Substance: CEFAZOLIN SODIUM
     Indication: PRODUCT USED FOR UNKNOWN INDICATION
     Route: 042
     Dates: start: 20150607, end: 20150610
  6. VANCOMYCIN [Suspect]
     Active Substance: VANCOMYCIN
     Route: 041
     Dates: start: 20150607, end: 20150610
  7. SULFAMETHOXAZOLE AND TRIMETHOPRIM [Suspect]
     Active Substance: SULFAMETHOXAZOLE\TRIMETHOPRIM
     Route: 048
     Dates: start: 20150626, end: 20150629
  8. SULFAMETHOXAZOLE AND TRIMETHOPRIM [Suspect]
     Active Substance: SULFAMETHOXAZOLE\TRIMETHOPRIM
     Route: 048
     Dates: start: 20150612, end: 20150618
  9. SULFAMETHOXAZOLE AND TRIMETHOPRIM [Suspect]
     Active Substance: SULFAMETHOXAZOLE\TRIMETHOPRIM
     Route: 048
     Dates: start: 20150710, end: 20150716

REACTIONS (1)
  - Drug-induced liver injury [Recovered/Resolved]

NARRATIVE: CASE EVENT DATE: 20150630
